FAERS Safety Report 17045003 (Version 2)
Quarter: 2020Q4

REPORT INFORMATION
  Report Type: Spontaneous
  Country: US (occurrence: US)
  Receive Date: 20191118
  Receipt Date: 20201229
  Transmission Date: 20210113
  Serious: No
  Sender: FDA-Public Use
  Company Number: US-SA-2019SA314325

PATIENT

DRUGS (1)
  1. DUPIXENT [Suspect]
     Active Substance: DUPILUMAB
     Indication: DERMATITIS ATOPIC
     Dosage: 1 SYRINGE UNDER THE SKIN
     Route: 058
     Dates: start: 201908

REACTIONS (3)
  - Oral herpes [Unknown]
  - Erythema [Unknown]
  - Scratch [Unknown]
